FAERS Safety Report 9207009 (Version 3)
Quarter: 2013Q2

REPORT INFORMATION
  Report Type: Report from Study
  Country: DE (occurrence: DE)
  Receive Date: 20130403
  Receipt Date: 20130522
  Transmission Date: 20140414
  Serious: No
  Sender: FDA-Public Use
  Company Number: DE-UCBSA-081720

PATIENT
  Age: 34 Year
  Sex: Female

DRUGS (8)
  1. VIMPAT [Suspect]
     Indication: EPILEPSY
     Route: 048
     Dates: start: 2010, end: 20101001
  2. VIMPAT [Suspect]
     Indication: EPILEPSY
     Dosage: DOSE INCREASE FROM 3X100 MG/DAY TO 350 MG/DAY (100 MG - 100 MG - 150 MG) THEN REDUCED TO 300 MG
     Route: 048
     Dates: start: 20101002, end: 20101002
  3. VIMPAT [Suspect]
     Indication: EPILEPSY
     Route: 048
     Dates: start: 20101003, end: 20101012
  4. LAMOTRIGINE [Concomitant]
     Indication: EPILEPSY
     Route: 048
  5. VALPROATE [Concomitant]
     Indication: EPILEPSY
     Route: 048
     Dates: end: 20101002
  6. VALPROATE [Concomitant]
     Indication: EPILEPSY
     Route: 048
     Dates: start: 20101002, end: 20101002
  7. VALPROATE [Concomitant]
     Indication: EPILEPSY
     Route: 048
     Dates: start: 20101002
  8. PREGABALIN [Concomitant]
     Indication: EPILEPSY
     Dosage: 600 MG/DAY

REACTIONS (7)
  - Tachycardia [Recovered/Resolved]
  - Dizziness [Recovered/Resolved]
  - Vomiting [Recovered/Resolved]
  - Nausea [Recovered/Resolved]
  - Cold sweat [Recovered/Resolved]
  - Asthenia [Recovered/Resolved]
  - Inappropriate schedule of drug administration [Unknown]
